FAERS Safety Report 9067655 (Version 1)
Quarter: 2013Q1

REPORT INFORMATION
  Report Type: Spontaneous
  Country: US (occurrence: US)
  Receive Date: 20130128
  Receipt Date: 20130128
  Transmission Date: 20140127
  Serious: Yes (Other)
  Sender: FDA-Public Use
  Company Number: US-PFIZER INC-2013033514

PATIENT
  Age: 63 Year
  Sex: Female
  Weight: 68.02 kg

DRUGS (3)
  1. CORTISONE [Suspect]
     Indication: ADRENAL INSUFFICIENCY
     Dosage: 17.5 MG, DAILY
  2. CORTISONE [Suspect]
     Dosage: 35 MG, 1X/DAY
  3. LEVOTHYROXINE [Concomitant]
     Indication: THYROID FUNCTION TEST ABNORMAL
     Dosage: 88 UG, DAILY

REACTIONS (1)
  - Nausea [Unknown]
